FAERS Safety Report 19443024 (Version 1)
Quarter: 2021Q2

REPORT INFORMATION
  Report Type: Spontaneous
  Country: US (occurrence: US)
  Receive Date: 20210621
  Receipt Date: 20210621
  Transmission Date: 20210717
  Serious: No
  Sender: FDA-Public Use
  Company Number: US-ADDMEDICA-2021000047

PATIENT
  Age: 66 Year
  Sex: Female

DRUGS (3)
  1. CYTARABINE. [Suspect]
     Active Substance: CYTARABINE
     Route: 065
  2. HYDROXYUREA. [Suspect]
     Active Substance: HYDROXYUREA
     Route: 065
  3. IDARUBICIN [Suspect]
     Active Substance: IDARUBICIN
     Route: 065

REACTIONS (1)
  - Febrile neutropenia [Unknown]
